FAERS Safety Report 10247007 (Version 1)
Quarter: 2014Q2

REPORT INFORMATION
  Report Type: Spontaneous
  Country: US (occurrence: None)
  Receive Date: 20140617
  Receipt Date: 20140617
  Transmission Date: 20141212
  Serious: No
  Sender: FDA-Public Use
  Company Number: None

PATIENT
  Age: 61 Year
  Sex: Female

DRUGS (2)
  1. STIVARGA 40MG BAYER [Suspect]
     Indication: NEOPLASM
     Dosage: DAILY FOR 21?DAYS AND 7
     Route: 048
     Dates: start: 20140528
  2. STIVARGA 40MG BAYER [Suspect]
     Indication: SOFT TISSUE DISORDER
     Dosage: DAILY FOR 21?DAYS AND 7
     Route: 048
     Dates: start: 20140528

REACTIONS (2)
  - Decreased appetite [None]
  - Blister [None]
